FAERS Safety Report 25025479 (Version 1)
Quarter: 2025Q1

REPORT INFORMATION
  Report Type: Spontaneous
  Country: GR (occurrence: GR)
  Receive Date: 20250228
  Receipt Date: 20250228
  Transmission Date: 20250409
  Serious: Yes (Hospitalization, Congenital Anomaly, Other)
  Sender: VISTAPHARM
  Company Number: GR-VISTAPHARM-2025-GR-000004

PATIENT
  Age: 17 Month
  Sex: Female
  Weight: 2.7 kg

DRUGS (3)
  1. DIAZEPAM [Suspect]
     Active Substance: DIAZEPAM
     Indication: Product used for unknown indication
     Route: 064
  2. VALPROIC ACID [Suspect]
     Active Substance: VALPROIC ACID
     Indication: Product used for unknown indication
     Route: 064
  3. ARIPIPRAZOLE [Suspect]
     Active Substance: ARIPIPRAZOLE
     Indication: Product used for unknown indication
     Route: 064

REACTIONS (4)
  - Choroidal coloboma [Not Recovered/Not Resolved]
  - Dysmorphism [Not Recovered/Not Resolved]
  - Congenital musculoskeletal disorder of limbs [Not Recovered/Not Resolved]
  - Foetal anticonvulsant syndrome [Not Recovered/Not Resolved]
